FAERS Safety Report 14062019 (Version 3)
Quarter: 2018Q4

REPORT INFORMATION
  Report Type: Spontaneous
  Country: US (occurrence: US)
  Receive Date: 20171009
  Receipt Date: 20181218
  Transmission Date: 20190204
  Serious: No
  Sender: FDA-Public Use
  Company Number: US-PFIZER INC-2017431165

PATIENT
  Age: 66 Year
  Sex: Female

DRUGS (1)
  1. NEURONTIN [Suspect]
     Active Substance: GABAPENTIN
     Indication: BRACHIORADIAL PRURITUS
     Dosage: 300 MG, 3X/DAY
     Route: 048

REACTIONS (11)
  - Constipation [Unknown]
  - Headache [Unknown]
  - Somnolence [Unknown]
  - Arthralgia [Unknown]
  - Vomiting [Unknown]
  - Dizziness [Unknown]
  - Depression [Unknown]
  - Female sexual dysfunction [Unknown]
  - Drug effect incomplete [Unknown]
  - Product use in unapproved indication [Unknown]
  - Nausea [Unknown]
